FAERS Safety Report 5380586-3 (Version None)
Quarter: 2007Q3

REPORT INFORMATION
  Report Type: 
  Country: None (occurrence: None)
  Receive Date: 20070706
  Receipt Date: 20070703
  Transmission Date: 20080115
  Serious: Yes (Life-Threatening, Hospitalization, Disabling, Other)
  Sender: FDA-Public Use
  Company Number: GB-ASTRAZENECA-2007GB01342

PATIENT
  Sex: Female

DRUGS (10)
  1. OMEPRAZOLE [Suspect]
     Route: 048
     Dates: start: 19950101, end: 20070510
  2. ASPIRIN [Concomitant]
  3. ATENOLOL [Concomitant]
  4. CALCICHEW D3 [Concomitant]
  5. CARBIMAZOLE [Concomitant]
  6. CODEINE PHOSPHATE AND ACETAMINOPHEN [Concomitant]
  7. LACTULOSE [Concomitant]
  8. LETROZOLE [Concomitant]
  9. RISEDRONATE SODIUM [Concomitant]
  10. SIMVASTATIN [Concomitant]

REACTIONS (5)
  - HYPOCALCAEMIA [None]
  - HYPOKALAEMIA [None]
  - HYPOMAGNESAEMIA [None]
  - HYPOPARATHYROIDISM [None]
  - SUPRAVENTRICULAR TACHYCARDIA [None]
